FAERS Safety Report 22031252 (Version 1)
Quarter: 2023Q1

REPORT INFORMATION
  Report Type: Spontaneous
  Country: CN (occurrence: CN)
  Receive Date: 20230223
  Receipt Date: 20230223
  Transmission Date: 20230418
  Serious: Yes (Other)
  Sender: FDA-Public Use
  Company Number: None

PATIENT
  Age: 41 Year
  Sex: Female
  Weight: 57 kg

DRUGS (14)
  1. CYCLOPHOSPHAMIDE [Suspect]
     Active Substance: CYCLOPHOSPHAMIDE
     Indication: Chemotherapy
     Dosage: AT 09:31, 0.85 G, ONCE DAILY, DILUTED WITH 100 ML OF 0.9 % SODIUM CHLORIDE, AS PART OF EC-T REGIMEN,
     Route: 041
     Dates: start: 20230206, end: 20230206
  2. CYCLOPHOSPHAMIDE [Suspect]
     Active Substance: CYCLOPHOSPHAMIDE
     Indication: Breast cancer
  3. SODIUM CHLORIDE [Suspect]
     Active Substance: SODIUM CHLORIDE
     Indication: Medication dilution
     Dosage: AT 09:31, 100 ML, ONCE DAILY, DOSAGE FORM: INJECTION, USED TO DILUTE 140MG EPIRUBICIN, AS PART OF EC
     Route: 041
     Dates: start: 20230206, end: 20230206
  4. EPIRUBICIN [Suspect]
     Active Substance: EPIRUBICIN
     Indication: Chemotherapy
     Dosage: AT 09:31, 140 MG, ONCE DAILY, DILUTED WITH 100 ML OF 0.9 % SODIUM CHLORIDE, AS PART OF EC-T REGIMEN,
     Route: 041
     Dates: start: 20230206, end: 20230206
  5. EPIRUBICIN [Suspect]
     Active Substance: EPIRUBICIN
     Indication: Breast cancer
  6. SODIUM CHLORIDE [Suspect]
     Active Substance: SODIUM CHLORIDE
     Indication: Chemotherapy
     Dosage: AT 09:31, 100 ML, ONCE DAILY, USED TO DILUTE 0.85G CYCLOPHOSPHAMIDE, AS PART OF EC-T REGIMEN, FOURTH
     Route: 041
     Dates: start: 20230206, end: 20230206
  7. SODIUM CHLORIDE [Suspect]
     Active Substance: SODIUM CHLORIDE
     Indication: Breast cancer
  8. OMEPRAZOLE SODIUM [Concomitant]
     Active Substance: OMEPRAZOLE SODIUM
     Indication: Prophylaxis
     Dosage: AT 09:06, 40 MG, DILUTED WITH 100 ML OF 0.9 % SODIUM CHLORIDE
     Route: 065
     Dates: start: 20230206
  9. TROPISETRON [Concomitant]
     Active Substance: TROPISETRON
     Indication: Prophylaxis of nausea and vomiting
     Dosage: AT 09:06, 5 MG, NEEDLE, DILUTED WITH 5 ML OF 0.9 % SODIUM CHLORIDE
     Route: 065
     Dates: start: 20230206
  10. TROPISETRON [Concomitant]
     Active Substance: TROPISETRON
     Dosage: AT 09:31, 5 MG, DILUTED WITH 5 ML OF 0.9 % SODIUM CHLORIDE
     Route: 040
     Dates: start: 20230206
  11. SODIUM CHLORIDE [Concomitant]
     Active Substance: SODIUM CHLORIDE
     Indication: Medication dilution
     Dosage: AT 09:06, 100 ML, USED TO DILUTE 40MG OMEPRAZOLE SODIUM
     Route: 065
     Dates: start: 20230206
  12. SODIUM CHLORIDE [Concomitant]
     Active Substance: SODIUM CHLORIDE
     Dosage: AT 09:06, 5 ML, USED TO DILUTE 5MG TROPISETRON NEEDLE
     Route: 065
     Dates: start: 20230206
  13. SODIUM CHLORIDE [Concomitant]
     Active Substance: SODIUM CHLORIDE
     Dosage: AT 09:31, 5 ML, USED TO DILUTE 5MG TROPISETRON
     Route: 040
     Dates: start: 20230206
  14. DEXAMETHASONE [Concomitant]
     Active Substance: DEXAMETHASONE
     Indication: Prophylaxis of nausea and vomiting
     Dosage: AT 09:06, 5 MG
     Route: 042
     Dates: start: 20230206

REACTIONS (3)
  - White blood cell count decreased [Recovering/Resolving]
  - Vomiting [Recovering/Resolving]
  - Nausea [Recovering/Resolving]

NARRATIVE: CASE EVENT DATE: 20230206
